FAERS Safety Report 5490231-4 (Version None)
Quarter: 2007Q4

REPORT INFORMATION
  Report Type: 
  Country: None (occurrence: None)
  Receive Date: 20071018
  Receipt Date: 20071009
  Transmission Date: 20080405
  Serious: Yes (Disabling, Other)
  Sender: FDA-Public Use
  Company Number: US-ABBOTT-07P-163-0364637-00

PATIENT
  Sex: Female
  Weight: 62.652 kg

DRUGS (18)
  1. HUMIRA [Suspect]
     Indication: RHEUMATOID ARTHRITIS
     Route: 058
     Dates: start: 20040801, end: 20050101
  2. HUMIRA [Suspect]
     Route: 058
     Dates: start: 20050101, end: 20061201
  3. HUMIRA [Suspect]
     Route: 058
     Dates: end: 20070201
  4. PREDNISONE [Concomitant]
     Indication: RHEUMATOID ARTHRITIS
     Route: 048
  5. PREDNISONE [Concomitant]
     Route: 048
  6. PREDNISONE [Concomitant]
     Route: 048
  7. VALIUM [Concomitant]
     Indication: INSOMNIA
     Route: 048
  8. ALENDRONATE SODIUM [Concomitant]
     Indication: DRUG USE FOR UNKNOWN INDICATION
     Dosage: ON AN EMPTY STOMACH IN AM, DO NOT LIE DOWN FOR 30 MIN AFTER
  9. NAPROXEN [Concomitant]
     Indication: PAIN
     Route: 048
  10. FLUOCINONIDE [Concomitant]
     Indication: DRUG USE FOR UNKNOWN INDICATION
     Dosage: 0.05 % EX SOLN, APPLY QD TO EAR AND SCALP SCALE
  11. KETOCONAZOLE [Concomitant]
     Indication: DRUG USE FOR UNKNOWN INDICATION
     Dosage: 2 % EX SHAM, LEAVE IN 5 MIN, THEN RINSE, TWICE WEEKLY
  12. LEKOVIT CA [Concomitant]
     Indication: DRUG USE FOR UNKNOWN INDICATION
  13. LEKOVIT CA [Concomitant]
  14. OMEPRAZOLE [Concomitant]
     Indication: DRUG USE FOR UNKNOWN INDICATION
     Route: 048
  15. JOINT FOOD [Concomitant]
     Indication: DRUG USE FOR UNKNOWN INDICATION
  16. CENTRUM SILVER [Concomitant]
     Indication: DRUG USE FOR UNKNOWN INDICATION
     Route: 048
  17. ABATACEPT [Concomitant]
     Indication: DRUG USE FOR UNKNOWN INDICATION
  18. PREDNISONE [Concomitant]

REACTIONS (20)
  - ANOREXIA [None]
  - CHEST PAIN [None]
  - DRUG INEFFECTIVE [None]
  - FATIGUE [None]
  - HEADACHE [None]
  - HERPES ZOSTER [None]
  - MULTIPLE MYELOMA [None]
  - NAUSEA [None]
  - OSTEOMA [None]
  - PARAPLEGIA [None]
  - PERIPHERAL NERVE LESION [None]
  - POST PROCEDURAL HAEMATOMA [None]
  - RHEUMATOID ARTHRITIS [None]
  - SPINAL CORD COMPRESSION [None]
  - SPINAL OSTEOARTHRITIS [None]
  - SQUAMOUS CELL CARCINOMA [None]
  - SYNOVIAL CYST [None]
  - SYNOVITIS [None]
  - TEMPERATURE REGULATION DISORDER [None]
  - WEIGHT DECREASED [None]
